FAERS Safety Report 6025446-X (Version None)
Quarter: 2008Q4

REPORT INFORMATION
  Report Type: 
  Country: None (occurrence: None)
  Receive Date: 20081229
  Receipt Date: 20081229
  Transmission Date: 20090506
  Serious: Yes (Life-Threatening)
  Sender: FDA-Public Use
  Company Number: None

PATIENT
  Age: 31 Year
  Sex: Male
  Weight: 83.9154 kg

DRUGS (2)
  1. PAXIL [Suspect]
     Indication: ANXIETY
     Dosage: 20MG 1XDAY PO
     Route: 048
     Dates: start: 20020901, end: 20080801
  2. CELEXA [Suspect]
     Indication: ANXIETY
     Dosage: 20MG 1XDAY PO
     Route: 048
     Dates: start: 20031215, end: 20080801

REACTIONS (3)
  - BEDRIDDEN [None]
  - DRUG WITHDRAWAL SYNDROME [None]
  - IMPAIRED WORK ABILITY [None]
